FAERS Safety Report 10502930 (Version 1)
Quarter: 2014Q4

REPORT INFORMATION
  Report Type: Spontaneous
  Country: FR (occurrence: FR)
  Receive Date: 20141007
  Receipt Date: 20141007
  Transmission Date: 20150528
  Serious: Yes (Other)
  Sender: FDA-Public Use
  Company Number: FR-BAXTER-2014BAX058175

PATIENT
  Age: 71 Year
  Sex: Male

DRUGS (4)
  1. ENDOXAN 1000 MG, LYOPHILISAT POUR SOLUTION INJECTABLE [Suspect]
     Active Substance: CYCLOPHOSPHAMIDE
     Dosage: 2ND COURSE
     Route: 042
     Dates: start: 20140514
  2. ENDOXAN 1000 MG, LYOPHILISAT POUR SOLUTION INJECTABLE [Suspect]
     Active Substance: CYCLOPHOSPHAMIDE
     Dosage: 3RD COURSE
     Route: 042
     Dates: start: 20140529, end: 20140529
  3. ENDOXAN 1000 MG, LYOPHILISAT POUR SOLUTION INJECTABLE [Suspect]
     Active Substance: CYCLOPHOSPHAMIDE
     Dosage: 4TH COURSE
     Route: 042
     Dates: start: 20140620
  4. ENDOXAN 1000 MG, LYOPHILISAT POUR SOLUTION INJECTABLE [Suspect]
     Active Substance: CYCLOPHOSPHAMIDE
     Indication: PRODUCT USED FOR UNKNOWN INDICATION
     Dosage: 1ST COURSE
     Route: 042
     Dates: start: 20140430

REACTIONS (5)
  - Rash [Recovered/Resolved]
  - Localised oedema [Unknown]
  - Skin atrophy [Unknown]
  - Cytomegalovirus test positive [Unknown]
  - Face oedema [Recovered/Resolved]

NARRATIVE: CASE EVENT DATE: 20140529
